FAERS Safety Report 7705569-7 (Version None)
Quarter: 2011Q3

REPORT INFORMATION
  Report Type: 
  Country: None (occurrence: None)
  Receive Date: 20110818
  Receipt Date: 20110803
  Transmission Date: 20111222
  Serious: Yes (Other)
  Sender: FDA-Public Use
  Company Number: PHHY2011JP70941

PATIENT
  Age: 73 Year
  Sex: Female

DRUGS (1)
  1. VISUDYNE [Suspect]
     Indication: POLYPOIDAL CHOROIDAL VASCULOPATHY

REACTIONS (3)
  - VISUAL ACUITY REDUCED [None]
  - OFF LABEL USE [None]
  - CHOROIDAL NEOVASCULARISATION [None]
